FAERS Safety Report 4416259-0 (Version None)
Quarter: 2004Q2

REPORT INFORMATION
  Report Type: 
  Country: None (occurrence: None)
  Receive Date: 20040625
  Receipt Date: 20040322
  Transmission Date: 20050107
  Serious: No
  Sender: FDA-Public Use
  Company Number: 205426

PATIENT
  Age: 57 Year
  Sex: Female

DRUGS (3)
  1. AVASTIN [Suspect]
     Indication: COLORECTAL CANCER METASTATIC
     Dosage: 425 MG, QOW , INTRAVENOUS
     Route: 042
     Dates: start: 20040318
  2. OXALIPLATIN [Concomitant]
  3. XELODA [Concomitant]

REACTIONS (1)
  - PAIN [None]
